FAERS Safety Report 25605867 (Version 3)
Quarter: 2025Q3

REPORT INFORMATION
  Report Type: Spontaneous
  Country: US (occurrence: US)
  Receive Date: 20250725
  Receipt Date: 20250924
  Transmission Date: 20251020
  Serious: Yes (Hospitalization, Other)
  Sender: UROGEN PHARMA
  Company Number: US-UROGEN PHARMA LTD.-2025-UGN-000135

PATIENT

DRUGS (6)
  1. JELMYTO [Suspect]
     Active Substance: MITOMYCIN
     Indication: Product used for unknown indication
     Dosage: 10 MILLILITER, ONCE A WEEK, RIGHT KIDNEY (INSTILLATION)
     Route: 065
     Dates: start: 20250627, end: 20250627
  2. JELMYTO [Suspect]
     Active Substance: MITOMYCIN
     Dosage: 11 MILLILITER, ONCE A WEEK, LEFT KIDNEY (INSTILLATION)
     Route: 065
     Dates: start: 20250627, end: 20250627
  3. JELMYTO [Suspect]
     Active Substance: MITOMYCIN
     Dosage: 10 MILLILITER, ONCE A WEEK, RIGHT KIDNEY (INSTILLATION)
     Route: 065
     Dates: start: 20250707, end: 20250707
  4. JELMYTO [Suspect]
     Active Substance: MITOMYCIN
     Dosage: 11 MILLILITER, ONCE A WEEK, LEFT KIDNEY (INSTILLATION)
     Route: 065
     Dates: start: 20250707, end: 20250707
  5. JELMYTO [Suspect]
     Active Substance: MITOMYCIN
     Dosage: 10 MILLILITER, ONCE A WEEK, RIGHT KIDNEY (INSTILLATION)
     Route: 065
     Dates: start: 20250714, end: 20250714
  6. JELMYTO [Suspect]
     Active Substance: MITOMYCIN
     Dosage: 11 MILLILITER, ONCE A WEEK, LEFT KIDNEY (INSTILLATION)
     Route: 065
     Dates: start: 20250714, end: 20250714

REACTIONS (2)
  - Acute kidney injury [Recovered/Resolved]
  - Urinary tract infection [Unknown]

NARRATIVE: CASE EVENT DATE: 20250701
